FAERS Safety Report 6344268-3 (Version None)
Quarter: 2009Q3

REPORT INFORMATION
  Report Type: 
  Country: None (occurrence: None)
  Receive Date: 20090903
  Receipt Date: 20090813
  Transmission Date: 20100115
  Serious: Yes (Hospitalization, Other)
  Sender: FDA-Public Use
  Company Number: JPI-P-005997

PATIENT
  Age: 48 Year
  Sex: Female
  Weight: 58.514 kg

DRUGS (9)
  1. XYREM [Suspect]
     Indication: NARCOLEPSY
     Dosage: SEE IMAGE
     Route: 048
     Dates: end: 20090201
  2. XYREM [Suspect]
     Indication: NARCOLEPSY
     Dosage: SEE IMAGE
     Route: 048
     Dates: start: 20060101
  3. XYREM [Suspect]
     Indication: NARCOLEPSY
     Dosage: SEE IMAGE
     Route: 048
     Dates: start: 20071224
  4. XYREM [Suspect]
     Indication: NARCOLEPSY
     Dosage: SEE IMAGE
     Route: 048
     Dates: start: 20081113
  5. XYREM [Suspect]
     Indication: NARCOLEPSY
     Dosage: SEE IMAGE
     Route: 048
     Dates: start: 20090201
  6. VITAMINS (TABLETS) [Concomitant]
  7. CALCIUM (TABLETS) [Concomitant]
  8. B12 (TABLETS) [Concomitant]
  9. TRAZODONE HCL [Concomitant]

REACTIONS (9)
  - BLOOD IRON DECREASED [None]
  - COLD SWEAT [None]
  - CONDITION AGGRAVATED [None]
  - HAEMORRHAGE [None]
  - INCISION SITE COMPLICATION [None]
  - INCISION SITE INFECTION [None]
  - INSOMNIA [None]
  - NEPHRECTOMY [None]
  - RENAL NEOPLASM [None]
